FAERS Safety Report 9717442 (Version 1)
Quarter: 2013Q4

REPORT INFORMATION
  Report Type: Spontaneous
  Country: US (occurrence: US)
  Receive Date: 20131127
  Receipt Date: 20131127
  Transmission Date: 20140711
  Serious: No
  Sender: FDA-Public Use
  Company Number: US-GILEAD-2009-0019687

PATIENT
  Sex: Female
  Weight: 81.65 kg

DRUGS (15)
  1. LETAIRIS [Suspect]
     Indication: PULMONARY ARTERIAL HYPERTENSION
     Route: 048
     Dates: start: 20081226
  2. NEXIUM [Concomitant]
  3. COUMADIN [Concomitant]
     Route: 048
  4. LASIX [Concomitant]
     Route: 048
  5. ATACAND [Concomitant]
  6. COREG [Concomitant]
     Route: 048
  7. LEVOXYL [Concomitant]
     Route: 048
  8. CRESTOR [Concomitant]
     Route: 048
  9. GABAPENTIN [Concomitant]
  10. CYMBALTA [Concomitant]
  11. AMBIEN [Concomitant]
     Route: 048
  12. HYDROCODONE/APAP [Concomitant]
  13. POTASSIUM CHLORIDE [Concomitant]
     Route: 048
  14. CALCIUM +D [Concomitant]
     Route: 048
  15. ASPIRIN [Concomitant]
     Route: 048

REACTIONS (1)
  - Nausea [None]
